FAERS Safety Report 23951024 (Version 1)
Quarter: 2024Q2

REPORT INFORMATION
  Report Type: Spontaneous
  Country: FR (occurrence: FR)
  Receive Date: 20240607
  Receipt Date: 20240607
  Transmission Date: 20240716
  Serious: Yes (Hospitalization)
  Sender: FDA-Public Use
  Company Number: None

PATIENT
  Age: 95 Year
  Sex: Female
  Weight: 55.9 kg

DRUGS (14)
  1. XANAX [Interacting]
     Active Substance: ALPRAZOLAM
     Indication: Behaviour disorder
     Dosage: 2 DOSAGE FORM, QD (1 IN THE EVENING)
     Route: 048
     Dates: end: 20180130
  2. BROMAZEPAM [Interacting]
     Active Substance: BROMAZEPAM
     Indication: Product used for unknown indication
     Dosage: 0.25 DOSAGE FORM, QD (1/4.0.0)
     Route: 048
     Dates: end: 20180130
  3. IMOVANE [Interacting]
     Active Substance: ZOPICLONE
     Indication: Insomnia
     Dosage: 1 DOSAGE FORM, QD (1 AT BED TIME)
     Route: 048
     Dates: end: 201801
  4. RISPERDAL [Interacting]
     Active Substance: RISPERIDONE
     Indication: Behaviour disorder
     Dosage: 1 DOSAGE FORM, QD (1/2.0.1/2)
     Route: 048
     Dates: start: 201801, end: 20180130
  5. OXAZEPAM [Interacting]
     Active Substance: OXAZEPAM
     Indication: Product used for unknown indication
     Dosage: 1 DOSAGE FORM, QD (0.0.1)
     Route: 048
     Dates: end: 201801
  6. ALFUZOSIN [Concomitant]
     Active Substance: ALFUZOSIN
     Indication: Urinary retention
     Dosage: 1 DOSAGE FORM, QD (0.0.1)
     Route: 048
  7. FUROSEMIDE [Concomitant]
     Active Substance: FUROSEMIDE
     Indication: Myocardial ischaemia
     Dosage: 1 DOSAGE FORM, QD (1.0.020 MG IN THE MORNING)
     Route: 048
  8. RAMIPRIL [Concomitant]
     Active Substance: RAMIPRIL
     Indication: Myocardial ischaemia
     Dosage: 0.5 DOSAGE FORM, QD (1/2.0.0)
     Route: 048
  9. MIRTAZAPINE [Concomitant]
     Active Substance: MIRTAZAPINE
     Indication: Behaviour disorder
     Dosage: 2 DOSAGE FORM, QD (0.0.2)
     Route: 048
  10. BISOPROLOL [Concomitant]
     Active Substance: BISOPROLOL\BISOPROLOL FUMARATE
     Indication: Myocardial ischaemia
     Dosage: 1 DOSAGE FORM, QD (1.0.0)
     Route: 048
  11. ESOMEPRAZOLE [Concomitant]
     Active Substance: ESOMEPRAZOLE
     Indication: Abdominal pain upper
     Dosage: 1 DOSAGE FORM, QD (0.0.1)
     Route: 048
  12. KARDEGIC [Concomitant]
     Active Substance: ASPIRIN DL-LYSINE
     Indication: Myocardial ischaemia
     Dosage: 1 DOSAGE FORM, QD (1 AT NOON)
     Route: 048
  13. ACETAMINOPHEN [Concomitant]
     Active Substance: ACETAMINOPHEN
     Indication: Pain
     Dosage: 3 DOSAGE FORM, QD (1.1.1)
     Route: 048
  14. PLAVIX [Concomitant]
     Active Substance: CLOPIDOGREL BISULFATE
     Indication: Product used for unknown indication
     Dosage: 1 DOSAGE FORM, QD (1.0.0)
     Route: 048

REACTIONS (5)
  - Fall [Recovered/Resolved]
  - Hallucination, visual [Recovered/Resolved]
  - Agitation [Recovering/Resolving]
  - Confusional state [Recovering/Resolving]
  - Drug interaction [Unknown]
